FAERS Safety Report 9438525 (Version 1)
Quarter: 2013Q3

REPORT INFORMATION
  Report Type: Spontaneous
  Country: GB (occurrence: GB)
  Receive Date: 20130802
  Receipt Date: 20130802
  Transmission Date: 20140515
  Serious: Yes (Other)
  Sender: FDA-Public Use
  Company Number: GB-B.I. PHARMACEUTICALS,INC./RIDGEFIELD-2013-UK-01575UK

PATIENT
  Age: 74 Year
  Sex: Male

DRUGS (7)
  1. PRADAXA [Suspect]
     Dosage: 300 MG
     Dates: start: 2012
  2. RAMIPRIL [Suspect]
  3. ALLOPURINOL [Concomitant]
  4. BISOPROLOL [Concomitant]
  5. DIGOXIN [Concomitant]
  6. EZETIMIBE [Concomitant]
  7. FELODIPINE [Concomitant]

REACTIONS (1)
  - Cough [Not Recovered/Not Resolved]
